FAERS Safety Report 13384853 (Version 1)
Quarter: 2017Q1

REPORT INFORMATION
  Report Type: Spontaneous
  Country: US (occurrence: US)
  Receive Date: 20170328
  Receipt Date: 20170328
  Transmission Date: 20170429
  Serious: No
  Sender: FDA-Public Use
  Company Number: None

PATIENT
  Age: 50 Year
  Sex: Female

DRUGS (3)
  1. OXYGEN. [Suspect]
     Active Substance: OXYGEN
  2. PROPAFOL [Suspect]
     Active Substance: PROPOFOL
  3. LIDOCAINE. [Suspect]
     Active Substance: LIDOCAINE

REACTIONS (5)
  - Throat irritation [None]
  - Sneezing [None]
  - Post procedural complication [None]
  - Rhinorrhoea [None]
  - Eye pruritus [None]

NARRATIVE: CASE EVENT DATE: 20170327
